FAERS Safety Report 6241359-2 (Version None)
Quarter: 2009Q2

REPORT INFORMATION
  Report Type: 
  Country: None (occurrence: None)
  Receive Date: 20090617
  Receipt Date: 20071217
  Transmission Date: 20091009
  Serious: No
  Sender: FDA-Public Use
  Company Number: 270510

PATIENT
  Age: 48 Year
  Sex: Male

DRUGS (2)
  1. LEVEMIR [Suspect]
     Indication: DIABETES MELLITUS
     Dosage: SUBCUTANEOUS
     Route: 058
  2. NOVOPEN 3 (INSULIN DELIVERY DEVICE) [Concomitant]

REACTIONS (3)
  - INJECTION SITE HAEMATOMA [None]
  - INJECTION SITE IRRITATION [None]
  - INJECTION SITE MASS [None]
